FAERS Safety Report 7048083-7 (Version None)
Quarter: 2010Q4

REPORT INFORMATION
  Report Type: 
  Country: None (occurrence: None)
  Receive Date: 20101015
  Receipt Date: 20101011
  Transmission Date: 20110411
  Serious: Yes (Hospitalization)
  Sender: FDA-Public Use
  Company Number: D0069094A

PATIENT
  Age: 88 Year
  Sex: Female
  Weight: 77 kg

DRUGS (7)
  1. CEFUHEXAL [Suspect]
     Indication: URINARY TRACT INFECTION
     Dosage: 250MG TWICE PER DAY
     Route: 048
     Dates: start: 20100802, end: 20100819
  2. BISOPROLOL [Concomitant]
     Indication: HYPERTENSION
     Dosage: 2.5MG TWICE PER DAY
     Route: 048
  3. TARGIN [Concomitant]
     Indication: PAIN
     Dosage: 15MG TWICE PER DAY
     Route: 048
  4. RAMIPRIL [Concomitant]
     Indication: HYPERTENSION
     Dosage: 5MG PER DAY
     Route: 048
     Dates: start: 20100903
  5. NULYTELY [Concomitant]
     Indication: CONSTIPATION
     Route: 048
  6. FALITHROM [Concomitant]
     Indication: THROMBOSIS PROPHYLAXIS
     Route: 048
  7. CLEXANE [Concomitant]
     Route: 058

REACTIONS (3)
  - ACUTE PRERENAL FAILURE [None]
  - DEHYDRATION [None]
  - DIARRHOEA [None]
